FAERS Safety Report 5393447-0 (Version None)
Quarter: 2007Q3

REPORT INFORMATION
  Report Type: 
  Country: None (occurrence: None)
  Receive Date: 20070723
  Receipt Date: 20060526
  Transmission Date: 20080115
  Serious: Yes (Other)
  Sender: FDA-Public Use
  Company Number: A0607094A

PATIENT
  Age: 61 Year
  Sex: Female

DRUGS (12)
  1. AVANDIA [Suspect]
     Dosage: 8MG PER DAY
     Route: 048
  2. GLYBURIDE [Concomitant]
  3. THEOPHYLLINE [Concomitant]
  4. EFFEXOR [Concomitant]
  5. OXAZEPAM [Concomitant]
  6. VERAPAMIL [Concomitant]
  7. TOPAMAX [Concomitant]
  8. LORATADINE [Concomitant]
  9. LISINOPRIL [Concomitant]
  10. LESCOL [Concomitant]
  11. PREVACID [Concomitant]
  12. ACTONEL [Concomitant]

REACTIONS (1)
  - HYPOGLYCAEMIA [None]
